FAERS Safety Report 5353078-5 (Version None)
Quarter: 2007Q2

REPORT INFORMATION
  Report Type: 
  Country: None (occurrence: None)
  Receive Date: 20070611
  Receipt Date: 20070530
  Transmission Date: 20071010
  Serious: Yes (Other)
  Sender: FDA-Public Use
  Company Number: JP-PFIZER INC-2007044544

PATIENT
  Age: 17 Year
  Sex: Female

DRUGS (1)
  1. HALCION [Suspect]
     Route: 048

REACTIONS (4)
  - ALTERED STATE OF CONSCIOUSNESS [None]
  - HYPOAESTHESIA [None]
  - OVERDOSE [None]
  - SUICIDE ATTEMPT [None]
